FAERS Safety Report 6499759-1 (Version None)
Quarter: 2009Q4

REPORT INFORMATION
  Report Type: 
  Country: None (occurrence: None)
  Receive Date: 20091203
  Receipt Date: 20091125
  Transmission Date: 20100525
  Serious: Yes (Other)
  Sender: FDA-Public Use
  Company Number: THYM-1001307

PATIENT
  Age: 62 Year
  Sex: Male

DRUGS (3)
  1. THYMOGLOBULIN [Suspect]
     Indication: KIDNEY TRANSPLANT REJECTION
     Dosage: 100 MG, ONCE, INTRAVENOUS
     Route: 042
     Dates: start: 20091122, end: 20091122
  2. CELLCEPT [Concomitant]
  3. PROTONIX [Concomitant]

REACTIONS (7)
  - FLUSHING [None]
  - HAEMORRHAGIC STROKE [None]
  - HEADACHE [None]
  - HYPERTENSION [None]
  - INFUSION RELATED REACTION [None]
  - PULMONARY EMBOLISM [None]
  - RESPIRATORY DISTRESS [None]
